FAERS Safety Report 10515640 (Version 1)
Quarter: 2014Q4

REPORT INFORMATION
  Report Type: Spontaneous
  Country: CN (occurrence: None)
  Receive Date: 20141009
  Receipt Date: 20141009
  Transmission Date: 20150528
  Serious: Yes (Other)
  Sender: FDA-Public Use
  Company Number: VAL_03466_2014

PATIENT
  Age: 39 Year
  Sex: Female

DRUGS (4)
  1. PREDNISONE (PREDNISONE) [Suspect]
     Active Substance: PREDNISONE
     Indication: PRODUCT USED FOR UNKNOWN INDICATION
     Dosage: (DF) UNKNOWN THERAPY DATES
  2. CALCITRIOL (CALCITRIOL) [Suspect]
     Active Substance: CALCITRIOL
     Indication: OSTEOPOROSIS
     Dosage: (DF)  (UNKNOWN  THERAPY DATES)
  3. CYCLOSPORIN A [Suspect]
     Active Substance: CYCLOSPORINE
     Indication: PRODUCT USED FOR UNKNOWN INDICATION
     Dosage: (DF) UNKNOWN THERAPY DATES
  4. CALCITRIOL (CALCITRIOL) [Suspect]
     Active Substance: CALCITRIOL
     Indication: HYPERPARATHYROIDISM
     Dosage: (DF)  (UNKNOWN  THERAPY DATES)

REACTIONS (4)
  - Hydronephrosis [None]
  - Anuria [None]
  - Azotaemia [None]
  - Urinary tract obstruction [None]

NARRATIVE: CASE EVENT DATE: 201212
